FAERS Safety Report 6200319-8 (Version None)
Quarter: 2009Q2

REPORT INFORMATION
  Report Type: 
  Country: None (occurrence: None)
  Receive Date: 20090522
  Receipt Date: 20090518
  Transmission Date: 20091009
  Serious: Yes (Other)
  Sender: FDA-Public Use
  Company Number: US-JNJFOC-20090504606

PATIENT
  Sex: Female
  Weight: 61.69 kg

DRUGS (3)
  1. DURAGESIC-100 [Suspect]
     Indication: BACK PAIN
     Route: 062
  2. NORCO [Concomitant]
     Indication: FIBROMYALGIA
     Dosage: 20 MG TABLET=10 MG - EVERY 6 HOURS
     Route: 048
  3. SOMA [Concomitant]
     Indication: FIBROMYALGIA
     Route: 048

REACTIONS (7)
  - AGITATION [None]
  - CHOLELITHIASIS [None]
  - DRUG INEFFECTIVE [None]
  - FIBROMYALGIA [None]
  - GALLBLADDER DISORDER [None]
  - PRODUCT QUALITY ISSUE [None]
  - WITHDRAWAL SYNDROME [None]
